FAERS Safety Report 10053976 (Version 1)
Quarter: 2014Q2

REPORT INFORMATION
  Report Type: Spontaneous
  Country: US (occurrence: US)
  Receive Date: 20140402
  Receipt Date: 20140402
  Transmission Date: 20141212
  Serious: No
  Sender: FDA-Public Use
  Company Number: US-AMGEN-USASP2014016967

PATIENT
  Age: 79 Year
  Sex: Male

DRUGS (4)
  1. ENBREL [Suspect]
     Indication: RHEUMATOID ARTHRITIS
     Dosage: 25 MG, 2 TIMES/WK
     Route: 065
     Dates: start: 1997, end: 2013
  2. HUMIRA [Concomitant]
     Dosage: UNK
     Dates: end: 2013
  3. PLAQUENIL                          /00072602/ [Concomitant]
     Dosage: 200 MG, BID
  4. METHOTREXATE [Concomitant]
     Dosage: UNK MG, UNK
     Dates: end: 20140307

REACTIONS (3)
  - Drug effect decreased [Unknown]
  - Haemoglobin decreased [Recovered/Resolved]
  - Urinary tract infection [Recovered/Resolved]
